FAERS Safety Report 7101133-1 (Version None)
Quarter: 2010Q4

REPORT INFORMATION
  Report Type: 
  Country: None (occurrence: None)
  Receive Date: 20101105
  Receipt Date: 20101025
  Transmission Date: 20110411
  Serious: Yes (Hospitalization)
  Sender: FDA-Public Use
  Company Number: 1000016178

PATIENT
  Age: 37 Year
  Sex: Female

DRUGS (10)
  1. ESCITALOPRAM OXALATE [Suspect]
     Indication: DEPRESSION
     Dosage: 20 MG (20 MG,1 IN 1 D),ORAL
     Route: 048
     Dates: start: 20100101, end: 20100430
  2. PRAZINE (PROMAZINE) (150 MILLIGRAM, TABLETS) [Suspect]
     Indication: ANXIETY DISORDER
     Dosage: 150 MG (150 MG,1 IN 1 D),ORAL
     Route: 048
     Dates: start: 20100317, end: 20100330
  3. ABILIFY [Suspect]
     Indication: DEPRESSION
     Dosage: 20 MG (20 MG,1 IN 1 D)
     Dates: start: 20100101, end: 20100421
  4. HALDOL [Suspect]
     Indication: DEPRESSION
     Dosage: 9 MG (3 MG,3 IN 1 D) ; 9 MG (3 MG,3 IN 1 D)
     Dates: start: 20100405, end: 20100423
  5. HALDOL [Suspect]
     Indication: DEPRESSION
     Dosage: 9 MG (3 MG,3 IN 1 D) ; 9 MG (3 MG,3 IN 1 D)
     Dates: start: 20100425, end: 20100428
  6. RISPERDAL [Suspect]
     Indication: DEPRESSION
     Dosage: 4 MG (2 MG,2 IN 1 D),ORAL ; 4 MG (2 MG,2 IN 1 D),ORAL
     Route: 048
     Dates: start: 20100422, end: 20100423
  7. RISPERDAL [Suspect]
     Indication: DEPRESSION
     Dosage: 4 MG (2 MG,2 IN 1 D),ORAL ; 4 MG (2 MG,2 IN 1 D),ORAL
     Route: 048
     Dates: start: 20100425, end: 20100428
  8. STILNOX (ZOLPIDEM) (10 MILLIGRAM) (ZOLPIDEM) [Concomitant]
  9. RIVOTRIL (CLONAZEPAM) (TABLETS) (CLONAZEPAM) [Concomitant]
  10. ENTUMIN (CLOTIAPINE) (TABLETS) (CLOTIAPINE) [Concomitant]

REACTIONS (5)
  - ANXIETY [None]
  - ELECTROCARDIOGRAM QT PROLONGED [None]
  - MOOD ALTERED [None]
  - TACHYCARDIA [None]
  - THINKING ABNORMAL [None]
